FAERS Safety Report 6134138-8 (Version None)
Quarter: 2009Q1

REPORT INFORMATION
  Report Type: 
  Country: None (occurrence: None)
  Receive Date: 20090326
  Receipt Date: 20090325
  Transmission Date: 20090719
  Serious: Yes (Death)
  Sender: FDA-Public Use
  Company Number: US-GILEAD-2009-0020410

PATIENT
  Sex: Female
  Weight: 68.1 kg

DRUGS (12)
  1. LETAIRIS [Suspect]
     Indication: PULMONARY ARTERIAL HYPERTENSION
     Route: 048
     Dates: start: 20070806, end: 20090204
  2. LASIX [Concomitant]
  3. PRINIVIL [Concomitant]
  4. BENICAR [Concomitant]
  5. ALDACTONE [Concomitant]
  6. TOPROL-XL [Concomitant]
  7. TRICOR [Concomitant]
  8. JANUVIA [Concomitant]
  9. GLUCOPHAGE [Concomitant]
  10. GLYBURIDE [Concomitant]
  11. CRESTOR [Concomitant]
  12. PROTONIX [Concomitant]

REACTIONS (1)
  - DEATH [None]
